FAERS Safety Report 15999432 (Version 2)
Quarter: 2019Q3

REPORT INFORMATION
  Report Type: Spontaneous
  Country: US (occurrence: US)
  Receive Date: 20190225
  Receipt Date: 20190703
  Transmission Date: 20191004
  Serious: No
  Sender: FDA-Public Use
  Company Number: US-PFIZER INC-2019078208

PATIENT
  Age: 74 Year
  Sex: Female
  Weight: 57.15 kg

DRUGS (2)
  1. NICOTROL [Suspect]
     Active Substance: NICOTINE
     Indication: SMOKING CESSATION THERAPY
     Dosage: 10MG CARTRIDGE, 4 MG DELIVERED
     Dates: start: 201902
  2. NICOTROL [Suspect]
     Active Substance: NICOTINE
     Dosage: 10 MG, UNK
     Dates: end: 2019

REACTIONS (2)
  - Depression [Unknown]
  - Drug ineffective [Not Recovered/Not Resolved]

NARRATIVE: CASE EVENT DATE: 201902
